FAERS Safety Report 6636591-X (Version None)
Quarter: 2010Q1

REPORT INFORMATION
  Report Type: 
  Country: None (occurrence: None)
  Receive Date: 20100316
  Receipt Date: 20100310
  Transmission Date: 20100710
  Serious: Yes (Other)
  Sender: FDA-Public Use
  Company Number: CA-MERCK-1003USA01741

PATIENT
  Age: 70 Year
  Sex: Female
  Weight: 68 kg

DRUGS (14)
  1. ZETIA [Suspect]
     Route: 048
  2. ACCURETIC [Concomitant]
     Route: 065
  3. CALCIUM CARBONATE [Concomitant]
     Route: 065
  4. EFFEXOR [Concomitant]
     Route: 065
  5. ASPIRIN [Concomitant]
     Route: 065
  6. GLUCOSAMINE [Concomitant]
     Route: 065
  7. NORVASC [Concomitant]
     Route: 065
  8. METFORMIN [Concomitant]
     Route: 065
  9. OXAZEPAM [Concomitant]
     Route: 065
  10. SPIRIVA [Concomitant]
     Route: 065
  11. SYMBICORT [Concomitant]
     Route: 065
  12. SYNTHROID [Concomitant]
     Route: 065
  13. VENTOLIN [Concomitant]
     Route: 055
  14. VITAMIN D (UNSPECIFIED) [Concomitant]
     Route: 065

REACTIONS (5)
  - BLOOD CREATININE INCREASED [None]
  - BLOOD UREA INCREASED [None]
  - CREATININE RENAL CLEARANCE DECREASED [None]
  - GLOMERULAR FILTRATION RATE DECREASED [None]
  - RENAL FAILURE ACUTE [None]
